FAERS Safety Report 18224366 (Version 2)
Quarter: 2020Q4

REPORT INFORMATION
  Report Type: Spontaneous
  Country: FR (occurrence: FR)
  Receive Date: 20200902
  Receipt Date: 20201231
  Transmission Date: 20210113
  Serious: Yes (Congenital Anomaly, Other)
  Sender: FDA-Public Use
  Company Number: FR-LUNDBECK-DKLU3020557

PATIENT
  Age: 28 Year
  Sex: Female

DRUGS (3)
  1. DEPAKINE CHRONO [Suspect]
     Active Substance: VALPROATE SODIUM
     Indication: PRODUCT USED FOR UNKNOWN INDICATION
     Route: 064
     Dates: start: 198611, end: 19870818
  2. CLOBAZAM. [Suspect]
     Active Substance: CLOBAZAM
     Indication: PRODUCT USED FOR UNKNOWN INDICATION
     Route: 064
     Dates: start: 198611, end: 19870818
  3. MENADIONE [Concomitant]
     Active Substance: MENADIONE
     Indication: PRODUCT USED FOR UNKNOWN INDICATION
     Route: 065
     Dates: start: 19870619

REACTIONS (30)
  - Dysmorphism [Unknown]
  - Carpal tunnel syndrome [Unknown]
  - Oropharyngeal discomfort [Unknown]
  - Cardiac murmur [Unknown]
  - Myopia [Unknown]
  - Disorientation [Unknown]
  - Syndactyly [Unknown]
  - Lordosis [Unknown]
  - Enuresis [Unknown]
  - Cognitive disorder [Unknown]
  - Ear disorder [Unknown]
  - Foetal exposure during pregnancy [Unknown]
  - Congenital foot malformation [Unknown]
  - Memory impairment [Unknown]
  - Nasal disorder [Unknown]
  - Educational problem [Unknown]
  - Osteochondritis [Unknown]
  - Psychomotor skills impaired [Unknown]
  - Intelligence test abnormal [Unknown]
  - Emotional disorder [Unknown]
  - Muscular weakness [Unknown]
  - Foetal anticonvulsant syndrome [Unknown]
  - Deafness [Unknown]
  - Strabismus [Unknown]
  - Communication disorder [Unknown]
  - Sleep disorder [Unknown]
  - Gastrooesophageal reflux disease [Unknown]
  - Hypotonia [Unknown]
  - Limb asymmetry [Unknown]
  - Disturbance in attention [Unknown]

NARRATIVE: CASE EVENT DATE: 19870818
